FAERS Safety Report 6726640-2 (Version None)
Quarter: 2010Q2

REPORT INFORMATION
  Report Type: 
  Country: None (occurrence: None)
  Receive Date: 20100514
  Receipt Date: 20100505
  Transmission Date: 20101027
  Serious: Yes (Hospitalization)
  Sender: FDA-Public Use
  Company Number: US-ABBOTT-10P-163-0639704-00

PATIENT
  Sex: Male
  Weight: 118.95 kg

DRUGS (15)
  1. NIASPAN [Suspect]
     Indication: HIGH DENSITY LIPOPROTEIN DECREASED
     Dates: start: 20030101
  2. PRAVASTATIN [Concomitant]
     Indication: BLOOD CHOLESTEROL INCREASED
  3. LASIX [Concomitant]
     Indication: CARDIAC FAILURE CONGESTIVE
  4. STOOL SOFTENER [Concomitant]
     Indication: CONSTIPATION
  5. CLONIDINE [Concomitant]
     Indication: HYPERTENSION
  6. SOTALOL HCL [Concomitant]
     Indication: HYPERTENSION
  7. NIFEDIPINE [Concomitant]
     Indication: HYPERTENSION
  8. LEVOTHYROXINE SODIUM [Concomitant]
     Indication: HYPOTHYROIDISM
  9. METOPROLOL SUCCINATE [Concomitant]
     Indication: HYPERTENSION
  10. POTASSIUM [Concomitant]
     Indication: ELECTROLYTE SUBSTITUTION THERAPY
  11. ASPIRIN [Concomitant]
     Indication: DRUG USE FOR UNKNOWN INDICATION
  12. AVODART [Concomitant]
     Indication: PROSTATOMEGALY
  13. AVAPRO [Concomitant]
     Indication: HYPERTENSION
  14. LISINOPRIL [Concomitant]
     Indication: HYPERTENSION
  15. FISH OIL [Concomitant]
     Indication: ROUTINE HEALTH MAINTENANCE

REACTIONS (8)
  - HIATUS HERNIA [None]
  - OEDEMA PERIPHERAL [None]
  - PAIN IN EXTREMITY [None]
  - PNEUMONIA [None]
  - PYREXIA [None]
  - THROMBOSIS [None]
  - ULCER [None]
  - VENOUS INSUFFICIENCY [None]
